FAERS Safety Report 8186937-9 (Version None)
Quarter: 2012Q1

REPORT INFORMATION
  Report Type: 
  Country: None (occurrence: None)
  Receive Date: 20120213
  Receipt Date: 20111101
  Transmission Date: 20120608
  Serious: No
  Sender: FDA-Public Use
  Company Number: 1000025137

PATIENT
  Age: 32 Year
  Sex: Male

DRUGS (5)
  1. SAVELLA [Suspect]
     Indication: COMPLEX REGIONAL PAIN SYNDROME
     Dosage: 50 MG BID (50 MG, 2 IN 1 D), ORAL
     Route: 048
     Dates: start: 20110101, end: 20110101
  2. HYDROCODONE (HYDROCODONE) (HYDROCODONE) [Concomitant]
  3. SAVELLA [Suspect]
     Indication: COMPLEX REGIONAL PAIN SYNDROME
     Dosage: SEE IMAGE
     Route: 048
     Dates: start: 20110101, end: 20110101
  4. SAVELLA [Suspect]
     Indication: COMPLEX REGIONAL PAIN SYNDROME
     Dosage: SEE IMAGE
     Route: 048
     Dates: start: 20110101, end: 20110101
  5. SAVELLA [Suspect]
     Indication: COMPLEX REGIONAL PAIN SYNDROME
     Dosage: SEE IMAGE
     Route: 048
     Dates: start: 20111001, end: 20110101

REACTIONS (2)
  - MOVEMENT DISORDER [None]
  - OFF LABEL USE [None]
